FAERS Safety Report 16444933 (Version 3)
Quarter: 2019Q3

REPORT INFORMATION
  Report Type: Spontaneous
  Country: US (occurrence: US)
  Receive Date: 20190618
  Receipt Date: 20190826
  Transmission Date: 20191004
  Serious: No
  Sender: FDA-Public Use
  Company Number: US-BAUSCH-BL-2019-017559

PATIENT
  Age: 79 Year
  Sex: Female
  Weight: 52.21 kg

DRUGS (3)
  1. ASPIRIN. [Concomitant]
     Active Substance: ASPIRIN
     Indication: PRODUCT USED FOR UNKNOWN INDICATION
     Route: 048
  2. LUMIFY [Suspect]
     Active Substance: BRIMONIDINE TARTRATE
     Indication: OCULAR HYPERAEMIA
     Dosage: ONE DROP IN EACH EYE
     Route: 047
     Dates: start: 201906, end: 201906
  3. LUMIFY [Suspect]
     Active Substance: BRIMONIDINE TARTRATE
     Dosage: 2 DROPS IN EACH EYE
     Route: 047
     Dates: start: 201906, end: 20190614

REACTIONS (2)
  - Drug ineffective [Unknown]
  - Intentional product use issue [Unknown]

NARRATIVE: CASE EVENT DATE: 201906
